FAERS Safety Report 8264581-2 (Version None)
Quarter: 2012Q2

REPORT INFORMATION
  Report Type: 
  Country: None (occurrence: None)
  Receive Date: 20120403
  Receipt Date: 20120326
  Transmission Date: 20120825
  Serious: Yes (Other)
  Sender: FDA-Public Use
  Company Number: DKLU1077968

PATIENT

DRUGS (1)
  1. SABRIL [Suspect]

REACTIONS (1)
  - ELECTROENCEPHALOGRAM ABNORMAL [None]
